FAERS Safety Report 20957137 (Version 2)
Quarter: 2022Q2

REPORT INFORMATION
  Report Type: Report from Study
  Country: BR (occurrence: BR)
  Receive Date: 20220614
  Receipt Date: 20220616
  Transmission Date: 20220720
  Serious: Yes (Hospitalization, Other)
  Sender: FDA-Public Use
  Company Number: BR-BIOGEN-2022BI01130635

PATIENT
  Age: 28 Year
  Sex: Male
  Weight: 90 kg

DRUGS (4)
  1. TECFIDERA [Suspect]
     Active Substance: DIMETHYL FUMARATE
     Indication: Multiple sclerosis
     Route: 048
     Dates: start: 202112, end: 202202
  2. TECFIDERA [Suspect]
     Active Substance: DIMETHYL FUMARATE
     Route: 048
     Dates: start: 202204
  3. TECFIDERA [Suspect]
     Active Substance: DIMETHYL FUMARATE
     Dosage: MAINTENANCE DOSE
     Route: 048
     Dates: start: 202201
  4. OMEPRAZOLE [Concomitant]
     Active Substance: OMEPRAZOLE
     Indication: Gastritis
     Route: 065

REACTIONS (6)
  - Suicide attempt [Recovered/Resolved]
  - Multiple sclerosis relapse [Recovered/Resolved with Sequelae]
  - Hemiplegia [Recovered/Resolved]
  - Depression [Not Recovered/Not Resolved]
  - Flushing [Not Recovered/Not Resolved]
  - Diarrhoea [Recovered/Resolved]

NARRATIVE: CASE EVENT DATE: 20211201
